FAERS Safety Report 8788429 (Version 1)
Quarter: 2012Q4

REPORT INFORMATION
  Report Type: 
  Country: US (occurrence: US)
  Receive Date: 20120914
  Receipt Date: 20120914
  Transmission Date: 20130627
  Serious: No
  Sender: FDA-Public Use
  Company Number: US-VERTEX PHARMACEUTICAL INC.-AE-2012-011865

PATIENT
  Age: 63 None
  Sex: Male
  Weight: 104.55 kg

DRUGS (3)
  1. INCIVEK [Suspect]
     Indication: HEPATITIS C
     Route: 048
     Dates: start: 20120629, end: 20120727
  2. RIBAVIRIN [Concomitant]
     Indication: HEPATITIS C
     Dates: start: 20120629, end: 20120727
  3. PEGASYS [Concomitant]
     Indication: HEPATITIS C
     Route: 058
     Dates: start: 20120629, end: 20120727

REACTIONS (3)
  - Sinusitis [Recovered/Resolved]
  - Fatigue [Unknown]
  - Drug ineffective [Unknown]
